FAERS Safety Report 10423386 (Version 3)
Quarter: 2014Q4

REPORT INFORMATION
  Report Type: Spontaneous
  Country: JP (occurrence: JP)
  Receive Date: 20140902
  Receipt Date: 20141219
  Transmission Date: 20150528
  Serious: Yes (Hospitalization, Other)
  Sender: FDA-Public Use
  Company Number: JP-PFIZER INC-2014237494

PATIENT
  Age: 70 Year
  Sex: Male

DRUGS (10)
  1. SULFAMETHOXAZOLE-TRIMETHOPRIM (SMZ) [Concomitant]
     Active Substance: SULFAMETHOXAZOLE\TRIMETHOPRIM
     Dosage: UNK
  2. CAMPTO [Suspect]
     Active Substance: IRINOTECAN
     Dosage: 150 MG/M2, 1X/DAY
     Route: 041
     Dates: start: 20130227, end: 20130227
  3. CALCIUM LEVOFOLINATE [Suspect]
     Active Substance: LEVOLEUCOVORIN CALCIUM
     Dosage: UNK, 1X/DAY
     Route: 041
     Dates: start: 20130227, end: 20130227
  4. CAMPTO [Suspect]
     Active Substance: IRINOTECAN
     Indication: COLON CANCER
     Dosage: 150 MG/M2, 1X/DAY
     Route: 041
     Dates: start: 20130130, end: 20130130
  5. CALCIUM LEVOFOLINATE [Suspect]
     Active Substance: LEVOLEUCOVORIN CALCIUM
     Indication: COLON CANCER
     Dosage: UNK, 1X/DAY
     Route: 041
     Dates: start: 20121205, end: 20130110
  6. VECTIBIX [Concomitant]
     Active Substance: PANITUMUMAB
     Dosage: 6 MG/KG, CYCLIC
     Dates: start: 20121205, end: 20130110
  7. CALCIUM LEVOFOLINATE [Suspect]
     Active Substance: LEVOLEUCOVORIN CALCIUM
     Dosage: UNK, 1X/DAY
     Route: 041
     Dates: start: 20130130, end: 20130130
  8. 5-FU [Concomitant]
     Active Substance: FLUOROURACIL
     Dosage: BOLUS, THEN 2400 MG/M2, CYCLIC
     Dates: start: 20121205, end: 20130227
  9. ELPLAT [Suspect]
     Active Substance: OXALIPLATIN
     Indication: COLON CANCER
     Dosage: 85 MG/M2, 1X/DAY
     Route: 041
     Dates: start: 20121205, end: 20121205
  10. AVASTIN [Concomitant]
     Active Substance: BEVACIZUMAB
     Dosage: 5 MG/KG, CYCLIC
     Dates: start: 20130130, end: 20130227

REACTIONS (1)
  - Pneumocystis jirovecii pneumonia [Recovering/Resolving]

NARRATIVE: CASE EVENT DATE: 20130312
